FAERS Safety Report 21504982 (Version 1)
Quarter: 2022Q4

REPORT INFORMATION
  Report Type: Spontaneous
  Country: US (occurrence: US)
  Receive Date: 20221025
  Receipt Date: 20221025
  Transmission Date: 20230113
  Serious: No
  Sender: FDA-Public Use
  Company Number: US-BEH-2022151030

PATIENT
  Sex: Female

DRUGS (1)
  1. PRIVIGEN [Suspect]
     Active Substance: HUMAN IMMUNOGLOBULIN G
     Indication: Humoral immune defect
     Dosage: 40 GRAM, EVERY 4 WEEKS
     Route: 042
     Dates: start: 202207

REACTIONS (2)
  - Dyspnoea [Unknown]
  - Cardiac disorder [Unknown]
